FAERS Safety Report 11701632 (Version 1)
Quarter: 2015Q4

REPORT INFORMATION
  Report Type: Spontaneous
  Country: US (occurrence: US)
  Receive Date: 20151105
  Receipt Date: 20151105
  Transmission Date: 20160304
  Serious: No
  Sender: FDA-Public Use
  Company Number: US-MALLINCKRODT-T201501262

PATIENT
  Age: 64 Year
  Sex: Female
  Weight: 108 kg

DRUGS (5)
  1. FENTANYL TRANSDERMAL SYSTEM [Suspect]
     Active Substance: FENTANYL
     Indication: SPINAL COLUMN INJURY
     Dosage: ONE 25 MCG/HR PATCH, Q72 HRS
     Route: 062
     Dates: start: 20150206
  2. TRAMADOL. [Concomitant]
     Active Substance: TRAMADOL
  3. OXYCODONE [Concomitant]
     Active Substance: OXYCODONE
  4. LIDODERM [Concomitant]
     Active Substance: LIDOCAINE
  5. LYRICA [Concomitant]
     Active Substance: PREGABALIN

REACTIONS (3)
  - Product adhesion issue [Unknown]
  - Drug effect decreased [Not Recovered/Not Resolved]
  - Wrong technique in product usage process [Not Recovered/Not Resolved]

NARRATIVE: CASE EVENT DATE: 201502
